FAERS Safety Report 20720624 (Version 1)
Quarter: 2022Q2

REPORT INFORMATION
  Report Type: Spontaneous
  Country: US (occurrence: US)
  Receive Date: 20220418
  Receipt Date: 20220418
  Transmission Date: 20220721
  Serious: No
  Sender: FDA-Public Use
  Company Number: US-ORGANON-O2204USA000132

PATIENT
  Age: 18 Year
  Sex: Female
  Weight: 73.923 kg

DRUGS (3)
  1. NEXPLANON [Suspect]
     Active Substance: ETONOGESTREL
     Indication: Hormone level abnormal
     Dosage: 1 ROD FOR 4 YEARS IN THE LEFT ARM
     Route: 059
     Dates: start: 20170311
  2. NEXPLANON [Suspect]
     Active Substance: ETONOGESTREL
     Indication: Cyst
  3. NEXPLANON [Concomitant]
     Active Substance: ETONOGESTREL
     Dosage: I IMPLANT
     Route: 059

REACTIONS (5)
  - Hormone level abnormal [Not Recovered/Not Resolved]
  - Weight increased [Not Recovered/Not Resolved]
  - Incorrect product administration duration [Unknown]
  - Product prescribing issue [Unknown]
  - Product use in unapproved indication [Unknown]

NARRATIVE: CASE EVENT DATE: 20170301
